FAERS Safety Report 8268580-6 (Version None)
Quarter: 2012Q2

REPORT INFORMATION
  Report Type: 
  Country: None (occurrence: None)
  Receive Date: 20120409
  Receipt Date: 20120330
  Transmission Date: 20120825
  Serious: Yes (Hospitalization)
  Sender: FDA-Public Use
  Company Number: US-BAYER-2011-023888

PATIENT
  Age: 28 Year
  Sex: Female
  Weight: 99.773 kg

DRUGS (3)
  1. IBUPROFEN [Concomitant]
     Indication: PAIN
     Dosage: 300 MCG/24HR, UNK
     Dates: start: 20100101, end: 20110101
  2. METHADONE HCL [Concomitant]
     Indication: PAIN
     Dosage: UNK UNK, QD
     Dates: start: 20070101
  3. YAZ [Suspect]
     Dosage: UNK
     Route: 048
     Dates: start: 20080701, end: 20091201

REACTIONS (3)
  - CHOLELITHIASIS [None]
  - PAIN [None]
  - BILE DUCT STONE [None]
